FAERS Safety Report 5117292-6 (Version None)
Quarter: 2006Q3

REPORT INFORMATION
  Report Type: 
  Country: None (occurrence: None)
  Receive Date: 20060926
  Receipt Date: 20060915
  Transmission Date: 20061208
  Serious: Yes (Other)
  Sender: FDA-Public Use
  Company Number: S06-USA-03691-01

PATIENT

DRUGS (1)
  1. LEXAPRO [Suspect]
     Dates: end: 20060101

REACTIONS (1)
  - WHITE BLOOD CELL COUNT DECREASED [None]
